FAERS Safety Report 4498483-4 (Version None)
Quarter: 2004Q4

REPORT INFORMATION
  Report Type: 
  Country: None (occurrence: None)
  Receive Date: 20041105
  Receipt Date: 20041021
  Transmission Date: 20050328
  Serious: Yes (Life-Threatening, Hospitalization)
  Sender: FDA-Public Use
  Company Number: 2004AP04344

PATIENT
  Age: 64 Year
  Sex: Female

DRUGS (3)
  1. ARIMIDEX [Suspect]
     Indication: BREAST CANCER
     Dosage: 1 MG DAILY PO
     Route: 048
     Dates: start: 20040705, end: 20040802
  2. RIZABEN [Concomitant]
  3. RADIATION THERAPY [Concomitant]

REACTIONS (15)
  - ASCITES [None]
  - ATELECTASIS [None]
  - CHOLECYSTITIS ACUTE [None]
  - EOSINOPHIL COUNT INCREASED [None]
  - ERYTHEMA [None]
  - GALLBLADDER DISORDER [None]
  - GALLBLADDER OEDEMA [None]
  - HAEMANGIOMA OF LIVER [None]
  - HEPATIC FUNCTION ABNORMAL [None]
  - HEPATIC NECROSIS [None]
  - HEPATITIS CHOLESTATIC [None]
  - JAUNDICE [None]
  - NASOPHARYNGITIS [None]
  - PLEURAL EFFUSION [None]
  - RASH [None]
